FAERS Safety Report 7399238-3 (Version None)
Quarter: 2011Q2

REPORT INFORMATION
  Report Type: 
  Country: None (occurrence: None)
  Receive Date: 20110407
  Receipt Date: 20110404
  Transmission Date: 20111010
  Serious: Yes (Life-Threatening)
  Sender: FDA-Public Use
  Company Number: JP-PFIZER INC-2009221885

PATIENT
  Age: 65 Year
  Sex: Female
  Weight: 45 kg

DRUGS (12)
  1. VOLTAREN [Concomitant]
     Dosage: 25 MG, AS NEEDED
     Route: 054
     Dates: start: 20090511, end: 20090523
  2. MAGNESIUM OXIDE [Concomitant]
     Dosage: UNK
     Route: 048
  3. RHYTHMY [Concomitant]
     Dosage: UNK
     Route: 048
     Dates: start: 20070328
  4. THYRADIN S [Concomitant]
     Dosage: 50 UG, 1X/DAY
     Route: 048
     Dates: start: 20090309
  5. BERIZYM [Concomitant]
     Dosage: UNK
     Route: 048
  6. PERDIPINE [Concomitant]
     Dosage: UNK
     Dates: start: 20090523
  7. FERROUS CITRATE [Concomitant]
     Dosage: 50 MG, 1X/DAY
     Route: 048
     Dates: start: 20090318
  8. AZUNOL #1 [Concomitant]
     Dosage: UNK
     Dates: start: 20080827
  9. LAC B [Concomitant]
     Dosage: UNK
     Route: 048
  10. SUNITINIB MALATE [Suspect]
     Indication: GASTROINTESTINAL STROMAL TUMOUR
     Dosage: 37.5 MG, 1X/DAY
     Route: 048
     Dates: start: 20080814, end: 20090522
  11. GASTER [Concomitant]
     Dosage: UNK
     Route: 048
     Dates: start: 20060809
  12. FOLIC ACID [Concomitant]
     Dosage: 15 MG, 3X/DAY
     Route: 048
     Dates: start: 20090318, end: 20090715

REACTIONS (1)
  - ANEURYSM [None]
